FAERS Safety Report 4401327-X (Version None)
Quarter: 2004Q3

REPORT INFORMATION
  Report Type: 
  Country: None (occurrence: None)
  Receive Date: 20040907
  Receipt Date: 20040311
  Transmission Date: 20050211
  Serious: No
  Sender: FDA-Public Use
  Company Number: US-BRISTOL-MYERS SQUIBB COMPANY-12531067

PATIENT
  Age: 75 Year
  Sex: Male
  Weight: 76 kg

DRUGS (6)
  1. COUMADIN [Suspect]
     Indication: CEREBROVASCULAR ACCIDENT
     Dosage: DOSAGE: 5MG AND 7.5MG ALTERNATING DAILY
     Route: 048
     Dates: start: 20031101
  2. COUMADIN [Suspect]
     Indication: CARDIAC DISORDER
     Dosage: DOSAGE: 5MG AND 7.5MG ALTERNATING DAILY
     Route: 048
     Dates: start: 20031101
  3. DYAZIDE [Suspect]
     Dates: start: 20031101
  4. LASIX [Suspect]
  5. PROSCAR [Concomitant]
  6. ZESTRIL [Concomitant]

REACTIONS (1)
  - ASTHENIA [None]
